FAERS Safety Report 13152329 (Version 1)
Quarter: 2017Q1

REPORT INFORMATION
  Report Type: Spontaneous
  Country: US (occurrence: US)
  Receive Date: 20170125
  Receipt Date: 20170125
  Transmission Date: 20170428
  Serious: Yes (Other)
  Sender: FDA-Public Use
  Company Number: US-BAUSCH-BL-2017-001446

PATIENT
  Age: 49 Year
  Sex: Male

DRUGS (2)
  1. LORAZEPAM. [Suspect]
     Active Substance: LORAZEPAM
     Indication: SCHIZOPHRENIA
     Route: 048
  2. LORAZEPAM. [Suspect]
     Active Substance: LORAZEPAM
     Route: 048

REACTIONS (3)
  - Drug ineffective [Unknown]
  - Disinhibition [Unknown]
  - Condition aggravated [Recovering/Resolving]
